FAERS Safety Report 9332584 (Version 1)
Quarter: 2013Q2

REPORT INFORMATION
  Report Type: Spontaneous
  Country: US (occurrence: US)
  Receive Date: 20130606
  Receipt Date: 20130606
  Transmission Date: 20140414
  Serious: No
  Sender: FDA-Public Use
  Company Number: US-BAYER-2013-069446

PATIENT
  Age: 53 Year
  Sex: Female

DRUGS (1)
  1. AVELOX [Suspect]
     Dosage: 1 DF, QD
     Route: 048
     Dates: start: 20130531, end: 20130601

REACTIONS (2)
  - Swelling face [None]
  - Agitation [None]
